FAERS Safety Report 19507388 (Version 2)
Quarter: 2021Q3

REPORT INFORMATION
  Report Type: Report from Study
  Country: SG (occurrence: SG)
  Receive Date: 20210708
  Receipt Date: 20210820
  Transmission Date: 20211014
  Serious: Yes (Hospitalization)
  Sender: FDA-Public Use
  Company Number: SG-JNJFOC-20210704767

PATIENT
  Age: 73 Year
  Sex: Female
  Weight: 50.2 kg

DRUGS (1)
  1. SIMPONI [Suspect]
     Active Substance: GOLIMUMAB
     Indication: RHEUMATOID ARTHRITIS
     Route: 058
     Dates: start: 20190219, end: 20210401

REACTIONS (1)
  - Glomerulonephritis rapidly progressive [Recovering/Resolving]

NARRATIVE: CASE EVENT DATE: 20210227
